FAERS Safety Report 8394155-4 (Version None)
Quarter: 2012Q2

REPORT INFORMATION
  Report Type: 
  Country: None (occurrence: None)
  Receive Date: 20120530
  Receipt Date: 20120529
  Transmission Date: 20120825
  Serious: Yes (Other)
  Sender: FDA-Public Use
  Company Number: 2012SP001530

PATIENT
  Age: 24 Year
  Sex: Female

DRUGS (3)
  1. LUNESTA [Suspect]
     Route: 048
     Dates: start: 20120501
  2. CLOTIAZEPAM [Concomitant]
     Indication: DEPRESSION
     Route: 048
     Dates: start: 20120401
  3. LUNESTA [Suspect]
     Indication: INSOMNIA
     Route: 048
     Dates: start: 20120501, end: 20120501

REACTIONS (1)
  - EPILEPSY [None]
